FAERS Safety Report 4882864-0 (Version None)
Quarter: 2005Q4

REPORT INFORMATION
  Report Type: 
  Country: None (occurrence: None)
  Receive Date: 20051201
  Receipt Date: 20050927
  Transmission Date: 20060501
  Serious: No
  Sender: FDA-Public Use
  Company Number: 2005PV002534

PATIENT
  Age: 63 Year
  Sex: Female
  Weight: 83.9154 kg

DRUGS (4)
  1. BYETTA [Suspect]
     Indication: DIABETES MELLITUS NON-INSULIN-DEPENDENT
     Dosage: SEE IMAGE
     Dates: start: 20050812, end: 20050101
  2. BYETTA [Suspect]
     Indication: DIABETES MELLITUS NON-INSULIN-DEPENDENT
     Dosage: SEE IMAGE
     Dates: start: 20050101
  3. PLAVIX [Concomitant]
  4. METFORMIN [Concomitant]

REACTIONS (7)
  - CONTUSION [None]
  - DECREASED APPETITE [None]
  - HAEMORRHAGE [None]
  - INJECTION SITE BRUISING [None]
  - PRURITUS [None]
  - SCRATCH [None]
  - WEIGHT DECREASED [None]
